FAERS Safety Report 5015324-7 (Version None)
Quarter: 2006Q2

REPORT INFORMATION
  Report Type: 
  Country: None (occurrence: None)
  Receive Date: 20060530
  Receipt Date: 20060530
  Transmission Date: 20061013
  Serious: Yes (Disabling, Other)
  Sender: FDA-Public Use
  Company Number: None

PATIENT
  Age: 53 Year
  Sex: Female
  Weight: 52.1637 kg

DRUGS (1)
  1. LIPITOR [Suspect]
     Indication: BLOOD CHOLESTEROL INCREASED
     Dosage: 10 MG - 1 PILL DAILY MOUTH
     Route: 048
     Dates: start: 20041101, end: 20050829

REACTIONS (32)
  - ACTIVITIES OF DAILY LIVING IMPAIRED [None]
  - ARTHRALGIA [None]
  - ASTHENIA [None]
  - AUTOIMMUNE DISORDER [None]
  - BACK DISORDER [None]
  - CARPAL TUNNEL SYNDROME [None]
  - CONNECTIVE TISSUE DISORDER [None]
  - FACIAL PAIN [None]
  - FATIGUE [None]
  - FEELING HOT [None]
  - GENERAL PHYSICAL HEALTH DETERIORATION [None]
  - HYPOAESTHESIA [None]
  - ILL-DEFINED DISORDER [None]
  - INSOMNIA [None]
  - JAW DISORDER [None]
  - JOINT SWELLING [None]
  - MUSCLE ATROPHY [None]
  - MUSCLE DISORDER [None]
  - MUSCULOSKELETAL STIFFNESS [None]
  - MYALGIA [None]
  - OEDEMA PERIPHERAL [None]
  - PAIN [None]
  - PAIN IN EXTREMITY [None]
  - PAIN IN JAW [None]
  - PARAESTHESIA [None]
  - PHARYNGEAL OEDEMA [None]
  - PHARYNGOLARYNGEAL PAIN [None]
  - POOR QUALITY SLEEP [None]
  - SKIN WRINKLING [None]
  - SWELLING [None]
  - SWELLING FACE [None]
  - TENDONITIS [None]
